FAERS Safety Report 8128754-1 (Version None)
Quarter: 2012Q1

REPORT INFORMATION
  Report Type: 
  Country: None (occurrence: None)
  Receive Date: 20120210
  Receipt Date: 20120130
  Transmission Date: 20120608
  Serious: Yes (Hospitalization)
  Sender: FDA-Public Use
  Company Number: CA-SANOFI-AVENTIS-2011SA013950

PATIENT
  Age: 75 Year
  Sex: Male
  Weight: 91.3 kg

DRUGS (7)
  1. BLINDED THERAPY [Suspect]
     Route: 048
     Dates: start: 20101021, end: 20101025
  2. CELEBREX [Suspect]
     Dates: start: 20110225, end: 20110304
  3. BISOPROLOL FUMARATE [Concomitant]
     Route: 048
     Dates: start: 20100510, end: 20101026
  4. BISOPROLOL FUMARATE [Concomitant]
     Dates: start: 20110309
  5. COUMADIN [Concomitant]
     Dosage: TO MAINTAIN INR BETWEEN 2-2.5
     Route: 048
     Dates: start: 20101018
  6. DRONEDARONE HCL [Suspect]
     Route: 048
     Dates: start: 20101026, end: 20110304
  7. DRONEDARONE HCL [Suspect]
     Route: 048
     Dates: start: 20110319

REACTIONS (1)
  - ERYTHEMA MULTIFORME [None]
